FAERS Safety Report 6906972-5 (Version None)
Quarter: 2010Q3

REPORT INFORMATION
  Report Type: 
  Country: None (occurrence: None)
  Receive Date: 20100804
  Receipt Date: 20071102
  Transmission Date: 20110219
  Serious: No
  Sender: FDA-Public Use
  Company Number: US-PFIZER INC-2007094412

PATIENT
  Age: 59 Year
  Sex: Female

DRUGS (1)
  1. NARDIL [Suspect]

REACTIONS (3)
  - BLOOD GLUCOSE INCREASED [None]
  - CONSTIPATION [None]
  - TINNITUS [None]
